FAERS Safety Report 8908649 (Version 1)
Quarter: 2012Q4

REPORT INFORMATION
  Report Type: 
  Country: KR (occurrence: KR)
  Receive Date: 20121114
  Receipt Date: 20121114
  Transmission Date: 20130627
  Serious: Yes (Other)
  Sender: FDA-Public Use
  Company Number: KR-ROCHE-1154935

PATIENT
  Age: 50 Year
  Sex: Female

DRUGS (2)
  1. CAPECITABINE [Suspect]
     Indication: GASTRIC CANCER
     Route: 048
  2. OXALIPLATIN [Suspect]
     Indication: GASTRIC CANCER
     Route: 065

REACTIONS (2)
  - Neuropathy peripheral [Unknown]
  - Fibromyalgia [Unknown]
